FAERS Safety Report 10826591 (Version 1)
Quarter: 2015Q1

REPORT INFORMATION
  Report Type: Spontaneous
  Country: CZ (occurrence: None)
  Receive Date: 20150213
  Receipt Date: 20150213
  Transmission Date: 20150721
  Serious: Yes (Hospitalization, Other)
  Sender: FDA-Public Use
  Company Number: 2014BI103544

PATIENT
  Age: 26 Year
  Sex: Female

DRUGS (5)
  1. TYSABRI [Suspect]
     Active Substance: NATALIZUMAB
     Indication: RELAPSING-REMITTING MULTIPLE SCLEROSIS
     Route: 042
     Dates: start: 20130522, end: 20140630
  2. EUTHYROX [Concomitant]
     Active Substance: LEVOTHYROXINE SODIUM
  3. CIPRALEX [Concomitant]
     Active Substance: ESCITALOPRAM OXALATE
  4. VIGANTOL [Concomitant]
  5. REBIF [Concomitant]
     Active Substance: INTERFERON BETA-1A

REACTIONS (4)
  - Pregnancy [None]
  - Abortion spontaneous [None]
  - Exposure during pregnancy [None]
  - Foetal death [None]

NARRATIVE: CASE EVENT DATE: 20140915
